FAERS Safety Report 5208811-X (Version None)
Quarter: 2007Q1

REPORT INFORMATION
  Report Type: 
  Country: None (occurrence: None)
  Receive Date: 20070116
  Receipt Date: 20070108
  Transmission Date: 20070707
  Serious: Yes (Hospitalization)
  Sender: FDA-Public Use
  Company Number: AU-ELI_LILLY_AND_COMPANY-AU200701002566

PATIENT
  Age: 1 Year
  Sex: Female
  Weight: 9.5 kg

DRUGS (3)
  1. HUMATROPE [Suspect]
     Indication: HYPOPITUITARISM
     Dosage: 0.15 MG, OTHER
     Route: 058
     Dates: start: 20050420
  2. HYDROCORTISONE [Concomitant]
     Indication: HYPOPITUITARISM
     Dosage: 2 MG, 3/D
     Route: 048
     Dates: start: 20050419
  3. THYROXINE ^APS^ [Concomitant]
     Indication: HYPOPITUITARISM
     Dosage: 25 UG, DAILY (1/D)
     Route: 048
     Dates: start: 20050425

REACTIONS (1)
  - GASTROENTERITIS [None]
